FAERS Safety Report 17505079 (Version 2)
Quarter: 2020Q1

REPORT INFORMATION
  Report Type: Spontaneous
  Country: JP (occurrence: JP)
  Receive Date: 20200306
  Receipt Date: 20200312
  Transmission Date: 20200409
  Serious: Yes (Other)
  Sender: FDA-Public Use
  Company Number: JP-BEH-2020113886

PATIENT

DRUGS (1)
  1. HIZENTRA [Suspect]
     Active Substance: HUMAN IMMUNOGLOBULIN G
     Dosage: UNK
     Route: 065
     Dates: start: 2019

REACTIONS (4)
  - Treponema test false positive [Unknown]
  - Suspected transmission of an infectious agent via product [Unknown]
  - Treponema test positive [Unknown]
  - Syphilis [Unknown]

NARRATIVE: CASE EVENT DATE: 2020
